FAERS Safety Report 12672519 (Version 1)
Quarter: 2016Q3

REPORT INFORMATION
  Report Type: Spontaneous
  Country: US (occurrence: US)
  Receive Date: 20160822
  Receipt Date: 20160822
  Transmission Date: 20161109
  Serious: No
  Sender: FDA-Public Use
  Company Number: US-JNJFOC-20160713399

PATIENT
  Age: 62 Year
  Sex: Female
  Weight: 63.5 kg

DRUGS (3)
  1. MENS ROGAINE EXTRA STRENGTH [Suspect]
     Active Substance: MINOXIDIL
     Indication: ANDROGENETIC ALOPECIA
     Dosage: AT LEAST A CAP, 1-2X DAILY
     Route: 061
     Dates: end: 20160712
  2. MENS ROGAINE EXTRA STRENGTH [Suspect]
     Active Substance: MINOXIDIL
     Route: 061
  3. SPIRONOLACTONE. [Concomitant]
     Active Substance: SPIRONOLACTONE
     Indication: PRODUCT USED FOR UNKNOWN INDICATION
     Dosage: DAILY, 3 MONTHS, APRIL
     Route: 065

REACTIONS (7)
  - Intentional product misuse [Not Recovered/Not Resolved]
  - Wrong technique in product usage process [Not Recovered/Not Resolved]
  - Hair disorder [Not Recovered/Not Resolved]
  - Hair colour changes [Not Recovered/Not Resolved]
  - Product quality issue [Unknown]
  - Drug administered at inappropriate site [Not Recovered/Not Resolved]
  - Product use issue [Not Recovered/Not Resolved]
